FAERS Safety Report 18303021 (Version 2)
Quarter: 2020Q4

REPORT INFORMATION
  Report Type: Report from Study
  Country: US (occurrence: US)
  Receive Date: 20200923
  Receipt Date: 20201014
  Transmission Date: 20210113
  Serious: Yes (Hospitalization)
  Sender: FDA-Public Use
  Company Number: US-ADAMAS PHARMA, LLC-2020ADA02002

PATIENT
  Age: 77 Year
  Sex: Female

DRUGS (9)
  1. GOCOVRI [Suspect]
     Active Substance: AMANTADINE
     Indication: DYSKINESIA
     Dosage: 274 MG, 1X/DAY, AT BEDTIME
     Route: 048
     Dates: start: 20180511
  2. AMLODIPINE [Concomitant]
     Active Substance: AMLODIPINE BESYLATE
     Dosage: UNK
  3. CARBIDOPA/LEVODOPA [Concomitant]
     Active Substance: CARBIDOPA\LEVODOPA
     Dosage: 100 MG, 4X/DAY
  4. LIPITOR [Concomitant]
     Active Substance: ATORVASTATIN CALCIUM
     Dosage: 10 MG, 1X/DAY, AT BEDTIME
  5. NEUPRO [Concomitant]
     Active Substance: ROTIGOTINE
     Dosage: 4 MG 1X/DAY
     Route: 062
  6. AMLODIPINE [Concomitant]
     Active Substance: AMLODIPINE BESYLATE
     Dosage: 10 MG, 1X/DAY
  7. DULOXETINE. [Concomitant]
     Active Substance: DULOXETINE
     Dosage: 30 MG, 2X/DAY
  8. GABAPENTIN. [Concomitant]
     Active Substance: GABAPENTIN
     Dosage: 300 MG, 1X/DAY, AT BEDTIME
  9. PANTOPRAZOLE [Concomitant]
     Active Substance: PANTOPRAZOLE
     Dosage: 40 MG, 1X/DAY

REACTIONS (13)
  - Acute kidney injury [Recovered/Resolved]
  - Haemorrhoids [Unknown]
  - Occult blood [Unknown]
  - Pneumonia [Unknown]
  - Acute myocardial infarction [Unknown]
  - Dyskinesia [Unknown]
  - Diverticulum [Unknown]
  - Phlebitis superficial [Not Recovered/Not Resolved]
  - Metabolic encephalopathy [Recovered/Resolved]
  - Pancytopenia [Unknown]
  - Hypertension [Unknown]
  - Respiratory failure [Recovered/Resolved]
  - Iron deficiency anaemia [Recovering/Resolving]

NARRATIVE: CASE EVENT DATE: 2020
